FAERS Safety Report 7484748-0 (Version None)
Quarter: 2011Q2

REPORT INFORMATION
  Report Type: 
  Country: None (occurrence: None)
  Receive Date: 20110502
  Receipt Date: 20110426
  Transmission Date: 20111010
  Serious: Yes (Death)
  Sender: FDA-Public Use
  Company Number: 2011028339

PATIENT
  Age: 43 Year
  Sex: 0
  Weight: 49.8957 kg

DRUGS (15)
  1. METOPROLOL TARTRATE [Concomitant]
  2. MORPHINE SULFATE INJ [Concomitant]
  3. HYDROCHLOROTHIAZIDE [Concomitant]
  4. OMEPRAZOLE [Concomitant]
  5. GABAPENTIN [Concomitant]
  6. BACTRIM [Concomitant]
  7. ANDROGEL [Concomitant]
  8. ACYCLOVIR [Concomitant]
  9. REMERON [Concomitant]
  10. HYDROMORPHONE (HYDROMORPHONE) [Concomitant]
  11. ACETAMINOPHEN [Concomitant]
  12. ATIVAN [Concomitant]
  13. ZEMAIRA [Suspect]
     Indication: ALPHA-1 ANTI-TRYPSIN DEFICIENCY
     Dosage: 60 MG/KG 1X/WEEK, AT A RATE OF 4 ML PER MIN, INTRAVENOUS
     Route: 042
     Dates: start: 20050927
  14. PREDNISONE [Concomitant]
  15. PROGRAF [Concomitant]

REACTIONS (1)
  - COLON CANCER METASTATIC [None]
